FAERS Safety Report 6021381-1 (Version None)
Quarter: 2008Q4

REPORT INFORMATION
  Report Type: 
  Country: None (occurrence: None)
  Receive Date: 20081229
  Receipt Date: 20081215
  Transmission Date: 20090506
  Serious: Yes (Death)
  Sender: FDA-Public Use
  Company Number: B0550383A

PATIENT
  Age: 87 Year
  Sex: Male

DRUGS (10)
  1. AUGMENTIN '125' [Suspect]
     Dosage: 1000MG PER DAY
     Route: 048
     Dates: start: 20081109, end: 20081113
  2. NOVATREX [Suspect]
     Dosage: 7.5MG WEEKLY
     Route: 048
     Dates: start: 20040101, end: 20081114
  3. PLAVIX [Concomitant]
     Dosage: 75MG PER DAY
     Route: 048
     Dates: end: 20081113
  4. DEPAKOTE [Concomitant]
     Dosage: 250MG PER DAY
     Route: 048
     Dates: end: 20081113
  5. FLECAINE [Concomitant]
     Dosage: 150MG PER DAY
     Route: 048
     Dates: end: 20081113
  6. NEBILOX [Concomitant]
     Dosage: 1.25MG PER DAY
     Route: 048
     Dates: end: 20081113
  7. SEROPLEX [Concomitant]
  8. CORTANCYL [Concomitant]
     Dosage: 1MG PER DAY
     Dates: end: 20081113
  9. ATROVENT [Concomitant]
     Route: 055
     Dates: start: 20081109
  10. VENTOLIN [Concomitant]
     Route: 055
     Dates: start: 20081109

REACTIONS (5)
  - ANAEMIA [None]
  - HAEMATURIA [None]
  - MUCOSAL HAEMORRHAGE [None]
  - PANCYTOPENIA [None]
  - THROMBOCYTOPENIA [None]
